FAERS Safety Report 8435954-X (Version None)
Quarter: 2012Q2

REPORT INFORMATION
  Report Type: 
  Country: None (occurrence: None)
  Receive Date: 20120614
  Receipt Date: 20120612
  Transmission Date: 20120825
  Serious: Yes (Other)
  Sender: FDA-Public Use
  Company Number: CA-JNJFOC-20120303887

PATIENT
  Sex: Female
  Weight: 113.4 kg

DRUGS (2)
  1. SIMPONI [Suspect]
     Indication: RHEUMATOID ARTHRITIS
     Route: 058
     Dates: start: 20101008
  2. METHOTREXATE [Concomitant]

REACTIONS (2)
  - PNEUMONIA [None]
  - SKIN DISCOLOURATION [None]
